FAERS Safety Report 7133287-5 (Version None)
Quarter: 2010Q4

REPORT INFORMATION
  Report Type: 
  Country: None (occurrence: None)
  Receive Date: 20101202
  Receipt Date: 20101112
  Transmission Date: 20110411
  Serious: Yes (Life-Threatening, Hospitalization)
  Sender: FDA-Public Use
  Company Number: DK-JNJFOC-20100403490

PATIENT
  Sex: Male

DRUGS (9)
  1. IBUPROFEN [Suspect]
     Indication: PAIN
     Route: 048
  2. OLMETEC [Interacting]
     Indication: HYPERTENSION
     Route: 048
  3. EVEROLIMUS [Interacting]
     Indication: RENAL CANCER
     Route: 048
  4. IMOCLONE [Concomitant]
     Indication: INSOMNIA
     Route: 048
  5. CENTYL [Concomitant]
     Indication: HYPERTENSION
     Route: 048
  6. PANTOLOC [Concomitant]
     Route: 048
  7. OXYCONTIN [Concomitant]
     Indication: PAIN
     Route: 048
  8. OXYNORM [Concomitant]
     Indication: PAIN
     Route: 048
  9. ALOPAM [Concomitant]
     Indication: SEDATIVE THERAPY
     Route: 048

REACTIONS (3)
  - DRUG INTERACTION [None]
  - RASH [None]
  - RENAL FAILURE [None]
